FAERS Safety Report 6006125-1 (Version None)
Quarter: 2008Q4

REPORT INFORMATION
  Report Type: 
  Country: None (occurrence: None)
  Receive Date: 20081217
  Receipt Date: 20080117
  Transmission Date: 20090506
  Serious: No
  Sender: FDA-Public Use
  Company Number: US-AMGEN-KDL258538

PATIENT
  Sex: Female
  Weight: 60.4 kg

DRUGS (10)
  1. ENBREL [Suspect]
     Indication: RHEUMATOID ARTHRITIS
     Route: 058
     Dates: start: 20070420
  2. ARAVA [Concomitant]
     Dates: start: 20060601
  3. PLAQUENIL [Concomitant]
     Route: 048
     Dates: start: 20050101
  4. PREDNISONE TAB [Concomitant]
     Route: 048
  5. ACTONEL [Concomitant]
     Route: 048
  6. IBUPROFEN [Concomitant]
     Route: 048
  7. CALCIUM [Concomitant]
     Route: 048
  8. GAVISCON [Concomitant]
     Route: 048
  9. TYLENOL (CAPLET) [Concomitant]
  10. METOPROLOL TARTRATE [Concomitant]
     Route: 048

REACTIONS (9)
  - ARTHRALGIA [None]
  - HERPES ZOSTER [None]
  - HYPERTENSION [None]
  - INJECTION SITE ERYTHEMA [None]
  - INJECTION SITE INDURATION [None]
  - INJECTION SITE RASH [None]
  - INJECTION SITE SWELLING [None]
  - PRURITUS [None]
  - STRESS [None]
